FAERS Safety Report 8045315-3 (Version None)
Quarter: 2012Q1

REPORT INFORMATION
  Report Type: 
  Country: None (occurrence: None)
  Receive Date: 20120113
  Receipt Date: 20120111
  Transmission Date: 20120608
  Serious: Yes (Hospitalization, Other)
  Sender: FDA-Public Use
  Company Number: ES-SHIRE-SPV1-2011-01354

PATIENT
  Age: 82 Year
  Sex: Female

DRUGS (5)
  1. HYDREA [Suspect]
     Indication: ESSENTIAL THROMBOCYTHAEMIA
     Route: 048
  2. ANAGRELIDE HYDROCHLORIDE [Interacting]
     Indication: ESSENTIAL THROMBOCYTHAEMIA
     Dosage: 2.5 MG, (1MG BREAKFAST-1MG LUNCH-0.5MG DINNER)
     Route: 048
     Dates: start: 20100101
  3. ANAGRELIDE HYDROCHLORIDE [Interacting]
     Dosage: 0.5 MG, 2X/DAY:BID
     Route: 048
  4. ANAGRELIDE HYDROCHLORIDE [Interacting]
     Dosage: 2 MG, (1 MG BREAKFAST, 0.5MG LUNCH- 0.5MG DINNER)
     Route: 048
  5. DENUBIL [Interacting]
     Indication: PRODUCT USED FOR UNKNOWN INDICATION
     Dosage: UNK UNK, UNKNOWN
     Route: 048
     Dates: start: 20110902, end: 20110901

REACTIONS (7)
  - NEUTROPENIA [None]
  - OEDEMA PERIPHERAL [None]
  - THROMBOCYTOPENIA [None]
  - URINARY TRACT INFECTION [None]
  - RENAL FAILURE [None]
  - CARDIAC FAILURE [None]
  - DRUG INTERACTION [None]
